FAERS Safety Report 19139989 (Version 2)
Quarter: 2021Q2

REPORT INFORMATION
  Report Type: Other
  Country: US (occurrence: US)
  Receive Date: 20210415
  Receipt Date: 20210531
  Transmission Date: 20210717
  Serious: Yes (Hospitalization)
  Sender: FDA-Public Use
  Company Number: US-ROCHE-2771358

PATIENT
  Age: 68 Year
  Sex: Male

DRUGS (6)
  1. COTELLIC [Suspect]
     Active Substance: COBIMETINIB
     Indication: SOFT TISSUE SARCOMA
     Dosage: QUANTITY 63 2 TABLET DAILY DAYS 1 TO 21 OF 28 DAY CYCLE
     Route: 048
  2. COTELLIC [Suspect]
     Active Substance: COBIMETINIB
     Indication: MALIGNANT MELANOMA
  3. ZELBORAF [Suspect]
     Active Substance: VEMURAFENIB
     Indication: MALIGNANT MELANOMA
  4. ZELBORAF [Suspect]
     Active Substance: VEMURAFENIB
     Indication: SOFT TISSUE SARCOMA
  5. COTELLIC [Suspect]
     Active Substance: COBIMETINIB
     Indication: SOFT TISSUE SARCOMA
  6. ZELBORAF [Suspect]
     Active Substance: VEMURAFENIB
     Indication: SOFT TISSUE SARCOMA
     Dosage: 4 TABLET EVERY 12 HR.
     Route: 048

REACTIONS (3)
  - Off label use [Unknown]
  - Prostatic disorder [Unknown]
  - COVID-19 [Unknown]

NARRATIVE: CASE EVENT DATE: 202005
